FAERS Safety Report 18263949 (Version 3)
Quarter: 2020Q4

REPORT INFORMATION
  Report Type: Spontaneous
  Country: US (occurrence: US)
  Receive Date: 20200914
  Receipt Date: 20201009
  Transmission Date: 20210113
  Serious: No
  Sender: FDA-Public Use
  Company Number: US-AMGEN-USASP2020146351

PATIENT
  Age: 86 Year
  Sex: Male
  Weight: 68.5 kg

DRUGS (2)
  1. NEULASTA [Suspect]
     Active Substance: PEGFILGRASTIM
     Dosage: 6 MILLIGRAM, Q3WK
     Route: 058
  2. NEULASTA [Suspect]
     Active Substance: PEGFILGRASTIM
     Indication: PROPHYLAXIS
     Dosage: 6 MILLIGRAM, Q3WK
     Route: 058

REACTIONS (2)
  - Application site pain [Unknown]
  - Device physical property issue [Unknown]

NARRATIVE: CASE EVENT DATE: 20200908
